FAERS Safety Report 6464460-7 (Version None)
Quarter: 2009Q4

REPORT INFORMATION
  Report Type: 
  Country: None (occurrence: None)
  Receive Date: 20091124
  Receipt Date: 20091109
  Transmission Date: 20100525
  Serious: Yes (Other)
  Sender: FDA-Public Use
  Company Number: 20090530

PATIENT
  Age: 84 Year
  Sex: Female

DRUGS (2)
  1. DOPAMINE HCL [Suspect]
     Indication: HYPOTENSION
     Dosage: 10 UG/HOUR INTRAVENOUS
     Route: 042
  2. ATROPINE [Concomitant]

REACTIONS (2)
  - CHOREOATHETOSIS [None]
  - CONFUSIONAL STATE [None]
